FAERS Safety Report 8847390 (Version 5)
Quarter: 2012Q4

REPORT INFORMATION
  Report Type: 
  Country: US (occurrence: US)
  Receive Date: 20121018
  Receipt Date: 20121206
  Transmission Date: 20130627
  Serious: Yes (Hospitalization)
  Sender: FDA-Public Use
  Company Number: US-ACTELION-A-NJ2012-72742

PATIENT
  Age: 35 Year
  Sex: Female

DRUGS (5)
  1. TRACLEER [Suspect]
     Indication: PULMONARY ARTERIAL HYPERTENSION
     Dosage: UNK
     Route: 048
  2. REMODULIN [Concomitant]
  3. SILDENAFIL [Concomitant]
  4. COUMADIN [Concomitant]
  5. FUROSEMIDE [Concomitant]

REACTIONS (15)
  - Axillary mass [Unknown]
  - Influenza like illness [Unknown]
  - Escherichia urinary tract infection [Unknown]
  - Chills [Unknown]
  - Pyrexia [Unknown]
  - Tremor [Unknown]
  - Nausea [Unknown]
  - Pain [Unknown]
  - Cardiac failure congestive [Unknown]
  - Hypotension [Unknown]
  - Dyspnoea [Unknown]
  - Fluid retention [Unknown]
  - Vomiting [Unknown]
  - Blood iron decreased [Unknown]
  - Herpes virus infection [Unknown]
